FAERS Safety Report 10802582 (Version 1)
Quarter: 2015Q1

REPORT INFORMATION
  Report Type: Spontaneous
  Country: US (occurrence: US)
  Receive Date: 20150217
  Receipt Date: 20150217
  Transmission Date: 20150721
  Serious: Yes (Hospitalization)
  Sender: FDA-Public Use
  Company Number: US-BRACCO-010736

PATIENT
  Age: 60 Year
  Sex: Female

DRUGS (5)
  1. CORTICOSTEROIDS [Concomitant]
     Active Substance: CORTICOSTEROID NOS
     Dates: start: 20140415, end: 20140415
  2. LIDOCAINE. [Concomitant]
     Active Substance: LIDOCAINE
     Dates: start: 20140415, end: 20140415
  3. CYMBALTA [Concomitant]
     Active Substance: DULOXETINE HYDROCHLORIDE
  4. ISOVUE [Suspect]
     Active Substance: IOPAMIDOL
     Indication: X-RAY
     Dosage: NEUROFORMINAL ADMINISTRATION
     Dates: start: 20140415, end: 20140415
  5. SYNTHROID [Concomitant]
     Active Substance: LEVOTHYROXINE SODIUM

REACTIONS (5)
  - Hypertension [Recovered/Resolved]
  - Seizure [Recovered/Resolved]
  - Off label use [Recovered/Resolved]
  - Abdominal pain lower [Recovered/Resolved]
  - Hyperhidrosis [Recovered/Resolved]

NARRATIVE: CASE EVENT DATE: 20140415
